FAERS Safety Report 7689279-0 (Version None)
Quarter: 2011Q3

REPORT INFORMATION
  Report Type: 
  Country: None (occurrence: None)
  Receive Date: 20110817
  Receipt Date: 20110812
  Transmission Date: 20111222
  Serious: Yes (Other)
  Sender: FDA-Public Use
  Company Number: FR-PFIZER INC-2011178174

PATIENT
  Age: 73 Year
  Sex: Male

DRUGS (3)
  1. SUTENT [Suspect]
     Dosage: 37.5 MG, 30 DAYS OUT OF 45 DAYS
  2. SUTENT [Suspect]
     Dosage: 50 MG, 30 DAYS OUT OF 45 DAYS
  3. SUTENT [Suspect]
     Indication: GASTROINTESTINAL NEOPLASM
     Dosage: 50 MG, 30 DAYS OUT OF 45 DAYS
     Dates: start: 20110401

REACTIONS (3)
  - POLYNEUROPATHY [None]
  - PARAESTHESIA [None]
  - VITAMIN B1 DEFICIENCY [None]
